FAERS Safety Report 7406576-4 (Version None)
Quarter: 2011Q2

REPORT INFORMATION
  Report Type: 
  Country: None (occurrence: None)
  Receive Date: 20110405
  Receipt Date: 20110405
  Transmission Date: 20111010
  Serious: Yes (Other)
  Sender: FDA-Public Use
  Company Number: None

PATIENT
  Age: 28 Year
  Sex: Female
  Weight: 54.4316 kg

DRUGS (1)
  1. DEPO-PROVERA [Suspect]
     Indication: CONTRACEPTION
     Dosage: 1 1 PER 3MONTHS
     Dates: start: 20101001, end: 20101201

REACTIONS (10)
  - WEIGHT INCREASED [None]
  - VAGINAL HAEMORRHAGE [None]
  - PREMENSTRUAL SYNDROME [None]
  - AMENORRHOEA [None]
  - WEIGHT DECREASED [None]
  - MOOD SWINGS [None]
  - DEPRESSION [None]
  - RASH [None]
  - FEELING ABNORMAL [None]
  - HAEMORRHAGE [None]
